FAERS Safety Report 8404356-4 (Version None)
Quarter: 2012Q2

REPORT INFORMATION
  Report Type: 
  Country: None (occurrence: None)
  Receive Date: 20120601
  Receipt Date: 20111104
  Transmission Date: 20120825
  Serious: No
  Sender: FDA-Public Use
  Company Number: US-NOVEN-11US003555

PATIENT
  Sex: Female
  Weight: 52.608 kg

DRUGS (1)
  1. DAYTRANA [Suspect]
     Indication: ATTENTION DEFICIT/HYPERACTIVITY DISORDER
     Dosage: 20 MG, QD, 9 HOURS
     Route: 062
     Dates: start: 20111102

REACTIONS (4)
  - DRUG ADMINISTERED AT INAPPROPRIATE SITE [None]
  - APPLICATION SITE SWELLING [None]
  - APPLICATION SITE REACTION [None]
  - APPLICATION SITE ERYTHEMA [None]
